FAERS Safety Report 6812325-0 (Version None)
Quarter: 2010Q2

REPORT INFORMATION
  Report Type: 
  Country: None (occurrence: None)
  Receive Date: 20100628
  Receipt Date: 20100617
  Transmission Date: 20101027
  Serious: Yes (Life-Threatening)
  Sender: FDA-Public Use
  Company Number: 001#8#1995-01174

PATIENT
  Age: 65 Year
  Sex: Female

DRUGS (2)
  1. ISOKET (ISOKET-SPRAY) (NOT SPECIFIED) [Suspect]
     Indication: BLOOD PRESSURE INCREASED
     Dosage: SEE IMAGE
     Route: 055
  2. NIFEDPINE [Suspect]
     Indication: BLOOD PRESSURE INCREASED
     Dosage: (ORAL)
     Route: 048

REACTIONS (4)
  - CEREBRAL HAEMORRHAGE [None]
  - ENDOTRACHEAL INTUBATION COMPLICATION [None]
  - LARYNGEAL OEDEMA [None]
  - STRIDOR [None]
